FAERS Safety Report 11001849 (Version 1)
Quarter: 2015Q2

REPORT INFORMATION
  Report Type: Spontaneous
  Country: RU (occurrence: RU)
  Receive Date: 20150408
  Receipt Date: 20150408
  Transmission Date: 20150821
  Serious: Yes (Other)
  Sender: FDA-Public Use
  Company Number: RU-ABBVIE-15P-251-1371876-00

PATIENT
  Age: 20 Month
  Sex: Male

DRUGS (1)
  1. DEPAKINE [Suspect]
     Active Substance: VALPROATE SODIUM
     Indication: EPILEPSY
     Route: 048

REACTIONS (4)
  - Drug ineffective [Recovered/Resolved]
  - Eye movement disorder [Recovered/Resolved]
  - Product counterfeit [Unknown]
  - Seizure [Recovered/Resolved]
